FAERS Safety Report 6017216-3 (Version None)
Quarter: 2008Q4

REPORT INFORMATION
  Report Type: 
  Country: None (occurrence: None)
  Receive Date: 20081219
  Receipt Date: 20081209
  Transmission Date: 20090506
  Serious: Yes (Death)
  Sender: FDA-Public Use
  Company Number: 2008S1021968

PATIENT
  Age: 28 Year
  Sex: Male
  Weight: 83.9154 kg

DRUGS (3)
  1. ALPRAZOLAM [Suspect]
  2. FENTORA [Suspect]
  3. ALPRAZOLAM [Suspect]

REACTIONS (2)
  - COMPLETED SUICIDE [None]
  - SELF-MEDICATION [None]
